FAERS Safety Report 17391638 (Version 3)
Quarter: 2020Q1

REPORT INFORMATION
  Report Type: Spontaneous
  Country: AU (occurrence: AU)
  Receive Date: 20200207
  Receipt Date: 20200323
  Transmission Date: 20200409
  Serious: Yes (Other)
  Sender: FDA-Public Use
  Company Number: AU-PFIZER INC-2020035343

PATIENT
  Sex: Male

DRUGS (1)
  1. MORPHINE SULFATE. [Suspect]
     Active Substance: MORPHINE SULFATE
     Indication: ANALGESIC THERAPY
     Dosage: UNK
     Route: 042

REACTIONS (5)
  - Drug hypersensitivity [Unknown]
  - Vomiting [Unknown]
  - Dyspnoea [Unknown]
  - Ill-defined disorder [Unknown]
  - Throat tightness [Unknown]
